FAERS Safety Report 6219984-4 (Version None)
Quarter: 2009Q2

REPORT INFORMATION
  Report Type: 
  Country: None (occurrence: None)
  Receive Date: 20090609
  Receipt Date: 20090609
  Transmission Date: 20091009
  Serious: Yes (Other)
  Sender: FDA-Public Use
  Company Number: US-PFIZER INC-2009204839

PATIENT
  Sex: Male
  Weight: 102 kg

DRUGS (5)
  1. GEODON [Suspect]
     Indication: PSYCHOTIC DISORDER
     Dosage: FREQUENCY: 4X/DAY, EVERY DAY;
     Dates: start: 20090101
  2. RISPERDAL [Suspect]
  3. SEROQUEL [Concomitant]
  4. DEPAKOTE [Concomitant]
  5. COGENTIN [Concomitant]

REACTIONS (2)
  - PARAESTHESIA [None]
  - RESTLESS LEGS SYNDROME [None]
